FAERS Safety Report 7026091-X (Version None)
Quarter: 2010Q4

REPORT INFORMATION
  Report Type: 
  Country: None (occurrence: None)
  Receive Date: 20101004
  Receipt Date: 20100927
  Transmission Date: 20110411
  Serious: No
  Sender: FDA-Public Use
  Company Number: US-BIOGENIDEC-2010BI033811

PATIENT
  Age: 48 Year
  Sex: Male

DRUGS (8)
  1. TYSABRI [Suspect]
     Indication: MULTIPLE SCLEROSIS
     Route: 042
     Dates: start: 20070116, end: 20080703
  2. TYSABRI [Suspect]
     Route: 042
     Dates: start: 20091214
  3. AVONEX [Concomitant]
     Route: 030
     Dates: start: 20011207
  4. ZOLOFT [Concomitant]
  5. NEURONTIN [Concomitant]
  6. ADVIL LIQUI-GELS [Concomitant]
  7. DIAZEPAM [Concomitant]
  8. VITAMIN B-12 [Concomitant]

REACTIONS (5)
  - ARTHRALGIA [None]
  - ASTHENIA [None]
  - OROPHARYNGEAL PAIN [None]
  - PRURITUS GENERALISED [None]
  - RASH PAPULAR [None]
